FAERS Safety Report 4739147-9 (Version None)
Quarter: 2005Q3

REPORT INFORMATION
  Report Type: 
  Country: None (occurrence: None)
  Receive Date: 20050810
  Receipt Date: 20050426
  Transmission Date: 20060218
  Serious: No
  Sender: FDA-Public Use
  Company Number: US-GLAXOSMITHKLINE-A0555853A

PATIENT
  Sex: Female

DRUGS (4)
  1. PAXIL CR [Suspect]
     Indication: SLEEP DISORDER
     Dosage: 37.5MG AT NIGHT
     Route: 048
     Dates: start: 20030101, end: 20050201
  2. ALLOPURINOL [Concomitant]
  3. ATENOLOL [Concomitant]
  4. ANTIHYPERTENSIVE [Concomitant]

REACTIONS (1)
  - DRUG INEFFECTIVE [None]
